FAERS Safety Report 20665392 (Version 9)
Quarter: 2022Q4

REPORT INFORMATION
  Report Type: Report from Study
  Country: US (occurrence: US)
  Receive Date: 20220402
  Receipt Date: 20221115
  Transmission Date: 20230113
  Serious: Yes (Hospitalization, Other)
  Sender: FDA-Public Use
  Company Number: USA-CA045-011-0001-2022-CA045-011000004

PATIENT
  Age: 63 Year
  Sex: Female
  Weight: 82 kg

DRUGS (45)
  1. NIVOLUMAB [Suspect]
     Active Substance: NIVOLUMAB
     Indication: Metastatic renal cell carcinoma
     Dosage: THE MOST RECENT ADMINISTRATION OF NIVOLUMAB WAS ON 14-FEB-2022
     Route: 042
     Dates: start: 20210913
  2. NIVOLUMAB [Suspect]
     Active Substance: NIVOLUMAB
     Dosage: INTERRUPTED
     Route: 042
     Dates: start: 20220307
  3. AXITINIB [Suspect]
     Active Substance: AXITINIB
     Indication: Metastatic renal cell carcinoma
     Dosage: MOST RECENT DOSE WAS ON 13-MAR-2022
     Route: 048
     Dates: start: 20210913
  4. AXITINIB [Suspect]
     Active Substance: AXITINIB
  5. CALCIUM [Concomitant]
     Active Substance: CALCIUM
     Indication: Prophylaxis
     Dosage: DAILY; PER DAY
     Route: 048
     Dates: start: 20210921
  6. CALCIUM [Concomitant]
     Active Substance: CALCIUM
  7. CALCIUM [Concomitant]
     Active Substance: CALCIUM
  8. MAGNESIUM [Concomitant]
     Active Substance: MAGNESIUM
     Indication: Prophylaxis
     Dosage: DAILY; PER DAY
     Route: 048
     Dates: start: 20210921
  9. MAGNESIUM [Concomitant]
     Active Substance: MAGNESIUM
  10. MAGNESIUM [Concomitant]
     Active Substance: MAGNESIUM
  11. TYLENOL [Concomitant]
     Active Substance: ACETAMINOPHEN
     Indication: Prophylaxis
     Dosage: 1DF= 1 UNIT NOS ?AS NEEDED
     Route: 048
     Dates: start: 20210921
  12. TYLENOL [Concomitant]
     Active Substance: ACETAMINOPHEN
  13. TYLENOL [Concomitant]
     Active Substance: ACETAMINOPHEN
  14. DIPHENHYDRAMINE HYDROCHLORIDE\LIDOCAINE HYDROCHLORIDE\NYSTATIN [Concomitant]
     Active Substance: DIPHENHYDRAMINE HYDROCHLORIDE\LIDOCAINE HYDROCHLORIDE\NYSTATIN
     Indication: Stomatitis
     Dosage: 1 DF= 30 UNIT NOS ?AS NEEDED
     Route: 048
     Dates: start: 20220104
  15. DIPHENHYDRAMINE HYDROCHLORIDE\LIDOCAINE HYDROCHLORIDE\NYSTATIN [Concomitant]
     Active Substance: DIPHENHYDRAMINE HYDROCHLORIDE\LIDOCAINE HYDROCHLORIDE\NYSTATIN
  16. PROMETHAZINE [Concomitant]
     Active Substance: PROMETHAZINE HYDROCHLORIDE
     Indication: Prophylaxis
     Dosage: AS NEEDED
     Route: 048
     Dates: start: 20220114, end: 20220328
  17. PROMETHAZINE [Concomitant]
     Active Substance: PROMETHAZINE HYDROCHLORIDE
  18. PROMETHAZINE [Concomitant]
     Active Substance: PROMETHAZINE HYDROCHLORIDE
  19. VITAMIN D2 [Concomitant]
     Active Substance: ERGOCALCIFEROL
     Indication: Prophylaxis
     Dosage: 1DF= 50000 UNIT NOS?ONE TIME PER WEEK
     Route: 048
     Dates: start: 20190823
  20. VITAMIN D2 [Concomitant]
     Active Substance: ERGOCALCIFEROL
  21. VITAMIN D2 [Concomitant]
     Active Substance: ERGOCALCIFEROL
  22. SYNTHROID [Concomitant]
     Active Substance: LEVOTHYROXINE SODIUM
     Indication: Product used for unknown indication
     Dosage: DAILY; PER DAY
     Route: 048
     Dates: start: 20220125, end: 20220307
  23. SYNTHROID [Concomitant]
     Active Substance: LEVOTHYROXINE SODIUM
     Dosage: DAILY; PER DAY
     Route: 048
     Dates: start: 20220308
  24. ASPIRIN [Concomitant]
     Active Substance: ASPIRIN
     Indication: Prophylaxis
     Dosage: DAILY; PER DAY
     Route: 048
     Dates: start: 2021, end: 20220301
  25. TRELEGY ELLIPTA [Concomitant]
     Active Substance: FLUTICASONE FUROATE\UMECLIDINIUM BROMIDE\VILANTEROL TRIFENATATE
     Indication: Product used for unknown indication
     Dosage: 1 DF=100 UNIT NOS?AS NEEDED
     Route: 055
     Dates: start: 2021
  26. BEVESPI AEROSPHERE [Concomitant]
     Active Substance: FORMOTEROL FUMARATE\GLYCOPYRROLATE
     Indication: Product used for unknown indication
     Dosage: 1 DF=9 UNIT NOS?AS NEEDED
     Route: 055
     Dates: start: 20190903
  27. VITAMINS NOS [Concomitant]
     Active Substance: VITAMINS
     Indication: Prophylaxis
     Dosage: 1 DF= 1 UNIT NOS ?DAILY; PER DAY
     Route: 048
     Dates: start: 20210921
  28. IPRATROPIUM BROMIDE AND ALBUTEROL SULFATE NEBULIZER TREATMENT [Concomitant]
     Indication: Product used for unknown indication
     Dosage: AS NEEDED
     Route: 055
     Dates: start: 20210916
  29. AZELASTINE [Concomitant]
     Active Substance: AZELASTINE
     Indication: Product used for unknown indication
     Dosage: 1 DF= 132 UNIT NOS?BD; TWICE PER DAY
     Route: 045
     Dates: start: 20210801
  30. COMPAZINE [Concomitant]
     Active Substance: PROCHLORPERAZINE MALEATE
     Indication: Product used for unknown indication
     Dosage: AS NEEDED
     Route: 048
     Dates: start: 20210927
  31. TOPROL XL [Concomitant]
     Active Substance: METOPROLOL SUCCINATE
     Indication: Prophylaxis
     Dosage: DAILY; PER DAY
     Route: 048
     Dates: start: 20211019
  32. ZOLOFT [Concomitant]
     Active Substance: SERTRALINE HYDROCHLORIDE
     Indication: Product used for unknown indication
     Dosage: BD; TWICE PER DAY
     Route: 048
     Dates: start: 20220114
  33. FLUTICASONE [Concomitant]
     Active Substance: FLUTICASONE
     Indication: Prophylaxis
     Dosage: 1 DF= 50 UNIT NOS?BD; TWICE PER DAY
     Route: 045
     Dates: start: 20190903
  34. XANAX [Concomitant]
     Active Substance: ALPRAZOLAM
     Indication: Product used for unknown indication
     Dosage: DAILY; PER DAY
     Route: 048
     Dates: start: 20220114
  35. ZYRTEC [Concomitant]
     Active Substance: CETIRIZINE HYDROCHLORIDE
     Indication: Prophylaxis
     Dosage: AS NEEDED
     Route: 048
     Dates: start: 2021
  36. COLACE [Concomitant]
     Active Substance: DOCUSATE SODIUM
     Indication: Prophylaxis
     Dosage: AS NEEDED
     Route: 048
     Dates: start: 202109
  37. SENOKOT [Concomitant]
     Active Substance: SENNOSIDES
     Indication: Prophylaxis
     Dosage: AS NEEDED
     Route: 048
     Dates: start: 202109
  38. ALLEGRA [Concomitant]
     Active Substance: FEXOFENADINE HYDROCHLORIDE
     Indication: Product used for unknown indication
     Dosage: AS NEEDED
     Route: 048
     Dates: start: 2021
  39. AMPLODIPINE [Concomitant]
     Indication: Prophylaxis
     Route: 048
     Dates: start: 20220215, end: 20220327
  40. PFIZER-BIONTECH COVID-19 VACCINE [Concomitant]
     Active Substance: TOZINAMERAN
     Indication: Prophylaxis
     Route: 030
     Dates: start: 20210405
  41. PFIZER-BIONTECH COVID-19 VACCINE [Concomitant]
     Active Substance: TOZINAMERAN
     Route: 030
     Dates: start: 20210427
  42. FLUCELVAX NOS [Concomitant]
     Active Substance: INFLUENZA A VIRUS A/BRISBANE/10/2010 (H1N1) ANTIGEN (MDCK CELL DERIVED, PROPIOLACTONE INACTIVATED)\I
     Indication: Prophylaxis
     Dosage: FLU VACCINE MDCK QUAD PF 2Y+ IM
     Route: 030
     Dates: start: 20211004
  43. XARELTO [Concomitant]
     Active Substance: RIVAROXABAN
     Indication: Pulmonary embolism
     Dosage: DAILY; PER DAY
     Route: 048
     Dates: start: 20220113, end: 20220201
  44. KENALOG [Concomitant]
     Active Substance: TRIAMCINOLONE ACETONIDE
     Indication: Rash
     Dosage: 1 DF= 0.1 UNIT NOS ?AS NEEDED
     Route: 061
     Dates: start: 20220225
  45. IMODIUM [Concomitant]
     Active Substance: LOPERAMIDE HYDROCHLORIDE
     Indication: Prophylaxis
     Dosage: AS NEEDED
     Route: 048
     Dates: start: 20211015

REACTIONS (3)
  - Haematochezia [Recovered/Resolved]
  - Decreased appetite [Recovered/Resolved with Sequelae]
  - Neck pain [Recovered/Resolved]

NARRATIVE: CASE EVENT DATE: 20220314
